FAERS Safety Report 5451423-3 (Version None)
Quarter: 2007Q3

REPORT INFORMATION
  Report Type: 
  Country: None (occurrence: None)
  Receive Date: 20070913
  Receipt Date: 20070904
  Transmission Date: 20080115
  Serious: Yes (Hospitalization)
  Sender: FDA-Public Use
  Company Number: B0485726A

PATIENT
  Age: 67 Year
  Sex: Female

DRUGS (11)
  1. AVANDAMET [Suspect]
     Route: 048
  2. TEGRETOL [Suspect]
     Indication: EPILEPSY
     Dosage: 1G PER DAY
     Route: 048
  3. DEPAKENE [Suspect]
     Indication: EPILEPSY
     Dosage: 2.5G PER DAY
     Route: 048
     Dates: end: 20070708
  4. NOVONORM [Suspect]
     Dosage: 3MG PER DAY
     Route: 048
     Dates: end: 20070702
  5. COTAREG [Suspect]
     Route: 048
     Dates: end: 20070702
  6. FENOFIBRATE [Suspect]
     Route: 048
     Dates: end: 20070702
  7. TENSTATEN [Suspect]
     Route: 048
     Dates: end: 20070702
  8. EQUANIL [Suspect]
     Route: 048
  9. VALIUM [Suspect]
     Route: 048
  10. BRICANYL [Concomitant]
     Route: 055
  11. ATROVENT [Concomitant]
     Route: 055

REACTIONS (9)
  - AMMONIA INCREASED [None]
  - ANOREXIA [None]
  - APHASIA [None]
  - BALANCE DISORDER [None]
  - COGNITIVE DISORDER [None]
  - CONFUSIONAL STATE [None]
  - METABOLIC ENCEPHALOPATHY [None]
  - TREMOR [None]
  - VOMITING [None]
